FAERS Safety Report 10973829 (Version 1)
Quarter: 2015Q2

REPORT INFORMATION
  Report Type: Spontaneous
  Country: US (occurrence: US)
  Receive Date: 20150401
  Receipt Date: 20150401
  Transmission Date: 20150821
  Serious: Yes (Hospitalization)
  Sender: FDA-Public Use
  Company Number: US-JNJFOC-20150320509

PATIENT
  Sex: Female
  Weight: 80.74 kg

DRUGS (3)
  1. REMICADE [Suspect]
     Active Substance: INFLIXIMAB
     Indication: COLITIS ULCERATIVE
     Route: 042
     Dates: start: 20150311
  2. REMICADE [Suspect]
     Active Substance: INFLIXIMAB
     Indication: COLITIS ULCERATIVE
     Dosage: 4 VIALS
     Route: 042
     Dates: start: 20140730
  3. ASACOL [Concomitant]
     Active Substance: MESALAMINE
     Dosage: 2 TAKEN
     Route: 065

REACTIONS (1)
  - Renal cell carcinoma [Unknown]
